FAERS Safety Report 15892018 (Version 1)
Quarter: 2019Q1

REPORT INFORMATION
  Report Type: Spontaneous
  Country: GB (occurrence: GB)
  Receive Date: 20190130
  Receipt Date: 20190130
  Transmission Date: 20190417
  Serious: No
  Sender: FDA-Public Use
  Company Number: GB-IPSEN-CABO-18012039

PATIENT
  Sex: Female

DRUGS (1)
  1. CABOMETYX [Suspect]
     Active Substance: CABOZANTINIB S-MALATE
     Indication: PRODUCT USED FOR UNKNOWN INDICATION
     Dosage: 40 MG, QD
     Route: 048

REACTIONS (10)
  - Oropharyngeal pain [Unknown]
  - Fatigue [Unknown]
  - Periodontitis [Unknown]
  - Sinusitis [Unknown]
  - Gingival bleeding [Unknown]
  - Tooth fracture [Unknown]
  - Tooth disorder [Unknown]
  - Decreased appetite [Unknown]
  - Epistaxis [Unknown]
  - Weight decreased [Unknown]
